FAERS Safety Report 14399895 (Version 3)
Quarter: 2018Q1

REPORT INFORMATION
  Report Type: Spontaneous
  Country: US (occurrence: US)
  Receive Date: 20180117
  Receipt Date: 20180126
  Transmission Date: 20180509
  Serious: Yes (Death, Hospitalization)
  Sender: FDA-Public Use
  Company Number: US-JNJFOC-20171136265

PATIENT
  Age: 79 Year
  Sex: Male

DRUGS (22)
  1. ALBUTEROL. [Concomitant]
     Active Substance: ALBUTEROL
     Dosage: EVERY 4 HOURS
     Route: 055
     Dates: start: 2017
  2. ERGOCALCIFEROL. [Concomitant]
     Active Substance: ERGOCALCIFEROL
     Dosage: 50,000 UNITS
     Route: 065
     Dates: start: 2017
  3. HUMALOG [Concomitant]
     Active Substance: INSULIN LISPRO
     Dosage: 12 UNITS BEFORE MEALS
     Route: 065
     Dates: start: 2017
  4. SPIRIVA [Concomitant]
     Active Substance: TIOTROPIUM BROMIDE MONOHYDRATE
     Route: 055
     Dates: start: 2017
  5. DILTIAZEM. [Concomitant]
     Active Substance: DILTIAZEM
     Dosage: EVERY 8 HOURS
     Route: 065
     Dates: start: 2017
  6. ZOMETA [Suspect]
     Active Substance: ZOLEDRONIC ACID
     Indication: PRODUCT USED FOR UNKNOWN INDICATION
     Route: 065
     Dates: start: 20171114
  7. TAXOTERE [Suspect]
     Active Substance: DOCETAXEL
     Indication: PRODUCT USED FOR UNKNOWN INDICATION
     Dosage: ONLY ONE TREATMENT RECEIVED
     Route: 065
     Dates: start: 20171116
  8. CLARITIN [Concomitant]
     Active Substance: LORATADINE
     Route: 065
  9. LANTUS [Concomitant]
     Active Substance: INSULIN GLARGINE
     Dosage: 20 UNITS BEFORE BREAKFAST AND DINNER
     Route: 065
     Dates: start: 2017
  10. METOPROLOL. [Concomitant]
     Active Substance: METOPROLOL
     Route: 065
  11. CALCITROL [Concomitant]
     Active Substance: CALCITRIOL
     Route: 065
  12. DECADRON [Suspect]
     Active Substance: DEXAMETHASONE
     Indication: PRODUCT USED FOR UNKNOWN INDICATION
     Route: 065
     Dates: start: 20171116
  13. SYMBICORT [Concomitant]
     Active Substance: BUDESONIDE\FORMOTEROL FUMARATE DIHYDRATE
     Route: 055
  14. TRAZODONE [Concomitant]
     Active Substance: TRAZODONE HYDROCHLORIDE
     Route: 065
     Dates: start: 2017
  15. CELEXA [Concomitant]
     Active Substance: CITALOPRAM HYDROBROMIDE
     Route: 065
  16. FOLIC ACID. [Concomitant]
     Active Substance: FOLIC ACID
     Route: 065
     Dates: start: 2017
  17. CALCIUM CARBONATE. [Concomitant]
     Active Substance: CALCIUM CARBONATE
     Route: 065
     Dates: start: 2017
  18. PREDNISONE. [Concomitant]
     Active Substance: PREDNISONE
     Dosage: WITH MEALS
     Route: 065
     Dates: start: 20170528
  19. ZYTIGA [Suspect]
     Active Substance: ABIRATERONE ACETATE
     Indication: PROSTATE CANCER
     Dosage: 250 MG X 4 TABLETS ONCE DAILY, ON AN EMPTY STOMACH IN THE MORNING
     Route: 048
     Dates: start: 20170528, end: 20171116
  20. BUMEX [Concomitant]
     Active Substance: BUMETANIDE
     Dosage: ONCE OR TWICE A DAY DEPENDING ON THE CONDITION
     Route: 065
     Dates: start: 2017
  21. PROTONIX [Concomitant]
     Active Substance: PANTOPRAZOLE SODIUM
     Route: 065
  22. PROCHLORPERAZINE. [Concomitant]
     Active Substance: PROCHLORPERAZINE
     Route: 065
     Dates: start: 20171114

REACTIONS (10)
  - Oropharyngeal pain [Unknown]
  - Renal failure [Fatal]
  - Blood pressure immeasurable [Fatal]
  - Asthenia [Unknown]
  - Cardiac disorder [Fatal]
  - Respiratory failure [Fatal]
  - Dysphagia [Unknown]
  - Drug ineffective [Unknown]
  - Prostate cancer [Fatal]
  - Pulmonary oedema [Fatal]

NARRATIVE: CASE EVENT DATE: 20171118
